FAERS Safety Report 25415770 (Version 1)
Quarter: 2025Q2

REPORT INFORMATION
  Report Type: Spontaneous
  Country: IN (occurrence: IN)
  Receive Date: 20250610
  Receipt Date: 20250610
  Transmission Date: 20250717
  Serious: Yes (Hospitalization, Other)
  Sender: LEGACY PHARMACEUTICAL PACKAGING
  Company Number: IN-LEGACY PHARMA INC. SEZC-LGP202505-000181

PATIENT
  Age: 30 Year
  Sex: Female

DRUGS (3)
  1. ATROPINE SULFATE\DIFENOXIN HYDROCHLORIDE [Suspect]
     Active Substance: ATROPINE SULFATE\DIFENOXIN HYDROCHLORIDE
     Indication: Chemical poisoning
     Route: 042
  2. CEFTRIAXONE [Concomitant]
     Active Substance: CEFTRIAXONE
     Indication: Chemical poisoning
     Route: 042
  3. PANTOPRAZOLE SODIUM [Concomitant]
     Active Substance: PANTOPRAZOLE SODIUM
     Indication: Chemical poisoning
     Route: 042

REACTIONS (10)
  - Hallucination [Unknown]
  - Brain stem stroke [Unknown]
  - Restlessness [Unknown]
  - Agitation [Unknown]
  - Photophobia [Unknown]
  - Electrocardiogram abnormal [Unknown]
  - Palpitations [Unknown]
  - Tachycardia [Unknown]
  - Vision blurred [Unknown]
  - Product use in unapproved indication [Unknown]
